FAERS Safety Report 4491818-8 (Version None)
Quarter: 2004Q4

REPORT INFORMATION
  Report Type: 
  Country: None (occurrence: None)
  Receive Date: 20041028
  Receipt Date: 20041028
  Transmission Date: 20050328
  Serious: Yes (Other)
  Sender: FDA-Public Use
  Company Number: None

PATIENT
  Age: 56 Year
  Sex: Male
  Weight: 70.3075 kg

DRUGS (1)
  1. VIOXX [Suspect]
     Indication: ARTHRITIS
     Dosage: 1 TAB  1 TIME PER DAY   ORAL
     Route: 048
     Dates: start: 20040201, end: 20040820

REACTIONS (2)
  - BLOOD URINE PRESENT [None]
  - HYPERTENSION [None]
